FAERS Safety Report 14681889 (Version 2)
Quarter: 2018Q3

REPORT INFORMATION
  Report Type: Spontaneous
  Country: RS (occurrence: RS)
  Receive Date: 20180326
  Receipt Date: 20180703
  Transmission Date: 20181010
  Serious: Yes (Other)
  Sender: FDA-Public Use
  Company Number: RS-SHIRE-RS201811620

PATIENT

DRUGS (1)
  1. ELAPRASE [Suspect]
     Active Substance: IDURSULFASE
     Indication: MUCOPOLYSACCHARIDOSIS II
     Dosage: 0.5 MG/KG, 1X/WEEK
     Route: 042
     Dates: start: 20140812, end: 20180313

REACTIONS (4)
  - Diarrhoea [Unknown]
  - Vomiting [Unknown]
  - Inappropriate schedule of drug administration [Unknown]
  - Pyrexia [Unknown]

NARRATIVE: CASE EVENT DATE: 20180320
